FAERS Safety Report 9357405 (Version 1)
Quarter: 2013Q2

REPORT INFORMATION
  Report Type: Spontaneous
  Country: US (occurrence: US)
  Receive Date: 20130620
  Receipt Date: 20130620
  Transmission Date: 20140414
  Serious: Yes (Hospitalization, Disabling)
  Sender: FDA-Public Use
  Company Number: US-SANOFI-AVENTIS-2013SA061136

PATIENT
  Age: 77 Year
  Sex: Male

DRUGS (6)
  1. LANTUS [Suspect]
     Dosage: MANY YEARS?DOSAGE - 70-100 UNITS
     Route: 051
  2. LANTUS SOLOSTAR [Suspect]
     Route: 051
  3. SOLOSTAR [Suspect]
  4. NOVOLOG MIX [Suspect]
  5. NOVOLOG [Suspect]
  6. NOVOLOG [Suspect]
     Dosage: DOSE:75 UNIT(S)

REACTIONS (6)
  - Ocular vascular disorder [Unknown]
  - Blindness [Not Recovered/Not Resolved]
  - Angiopathy [Unknown]
  - Blood glucose increased [Unknown]
  - Insulin resistance [Unknown]
  - Hearing impaired [Unknown]
